FAERS Safety Report 7707984 (Version 2)
Quarter: 2012Q4

REPORT INFORMATION
  Report Type: 
  Country: US (occurrence: US)
  Receive Date: 20101214
  Receipt Date: 20121010
  Transmission Date: 20130627
  Serious: No
  Sender: FDA-Public Use
  Company Number: US-ASTRAZENECA-2010SE07658

PATIENT
  Age: 64 Year
  Sex: Female

DRUGS (7)
  1. CRESTOR [Suspect]
     Indication: BLOOD CHOLESTEROL INCREASED
     Route: 048
     Dates: start: 2005
  2. METOPROLOL SUCCINATE (WATSON) [Suspect]
     Indication: HYPERTENSION
     Route: 048
     Dates: start: 2009
  3. CALCIUM [Concomitant]
  4. ASPIRIN [Concomitant]
  5. MULTIVITAMIN [Concomitant]
  6. VITAMIN C [Concomitant]
  7. CO-Q 10 [Concomitant]

REACTIONS (5)
  - Blood pressure systolic increased [Not Recovered/Not Resolved]
  - Hypercholesterolaemia [Unknown]
  - Hypertension [Unknown]
  - Pain in extremity [Recovered/Resolved]
  - High density lipoprotein decreased [Not Recovered/Not Resolved]
